FAERS Safety Report 11176461 (Version 3)
Quarter: 2015Q2

REPORT INFORMATION
  Report Type: Spontaneous
  Country: JP (occurrence: JP)
  Receive Date: 20150610
  Receipt Date: 20150619
  Transmission Date: 20150821
  Serious: Yes (Life-Threatening, Hospitalization)
  Sender: FDA-Public Use
  Company Number: JP-AMGEN-JPNSP2015052717

PATIENT
  Age: 45 Year
  Sex: Male
  Weight: 86 kg

DRUGS (18)
  1. OXINORM                            /00045603/ [Concomitant]
     Dosage: 5 MG, TIME FOR PAIN
     Route: 065
  2. RANMARK [Suspect]
     Active Substance: DENOSUMAB
     Indication: RECTAL CANCER
  3. MAGLAX [Concomitant]
     Active Substance: MAGNESIUM OXIDE
     Dosage: 250 MG, TID AFTER BREAKFAST, LUNCH AND DINNER
     Route: 065
  4. CALONAL [Concomitant]
     Active Substance: ACETAMINOPHEN
     Dosage: 400 MG, TID AFTER BREAKFAST, LUNCH AND DINNER
     Route: 065
  5. LOSARTAN                           /01121602/ [Concomitant]
     Active Substance: LOSARTAN
     Dosage: 100 MG, QD AFTER BREAKFAST
     Route: 065
  6. RANMARK [Suspect]
     Active Substance: DENOSUMAB
     Indication: METASTASES TO BONE
  7. TAPENTA [Concomitant]
     Active Substance: TAPENTADOL HYDROCHLORIDE
     Dosage: 50 MG, QD AFTER DINNER AT 20:00
     Route: 048
  8. UBRETID [Concomitant]
     Active Substance: DISTIGMINE BROMIDE
     Dosage: 5 MG, QD AFTER DINNER
     Route: 065
  9. REBAMIPIDE [Concomitant]
     Active Substance: REBAMIPIDE
     Dosage: 100 MG, TID AFTER BREAKFAST, LUNCH AND DINNER
     Route: 065
  10. EBRANTIL                           /00631801/ [Concomitant]
     Active Substance: URAPIDIL
     Dosage: 15 MG, BID
     Route: 065
  11. AMLODIPINE [Concomitant]
     Active Substance: AMLODIPINE BESYLATE
     Dosage: 10 MG, QD AFTER BREAKFAST
     Route: 065
  12. LOXOPROFEN [Concomitant]
     Active Substance: LOXOPROFEN
     Dosage: 60 MG, TID AFTER BREAKFAST, LUNCH AND DINNER
     Route: 065
  13. RANMARK [Suspect]
     Active Substance: DENOSUMAB
     Indication: BONE CANCER
     Dosage: 120 MG, UNK
     Route: 058
     Dates: start: 20150323, end: 20150323
  14. CRAVIT [Concomitant]
     Active Substance: LEVOFLOXACIN
     Dosage: 500 MG, QD AFTER BREAKFAST
     Route: 065
  15. NOVAMIN                            /00013304/ [Concomitant]
     Active Substance: PROCHLORPERAZINE MALEATE
     Dosage: 5 MG, TIME FOR FEELING QUASY AND VOMITING
     Route: 065
  16. AMLODIN [Concomitant]
     Active Substance: AMLODIPINE BESYLATE
     Dosage: UNK
     Route: 065
  17. DENOTAS [Concomitant]
     Active Substance: CALCIUM CARBONATE\CHOLECALCIFEROL\MAGNESIUM CARBONATE
     Dosage: UNK
     Route: 065
  18. ALLEGRA [Concomitant]
     Active Substance: FEXOFENADINE HYDROCHLORIDE
     Dosage: 60 MG, BID AFTER BREAKFAST AND DINNER
     Route: 065

REACTIONS (4)
  - Renal impairment [Recovered/Resolved with Sequelae]
  - Hypocalcaemia [Recovered/Resolved]
  - Hydronephrosis [Recovered/Resolved with Sequelae]
  - Tetany [Recovered/Resolved]

NARRATIVE: CASE EVENT DATE: 20150420
